FAERS Safety Report 10731429 (Version 1)
Quarter: 2015Q1

REPORT INFORMATION
  Report Type: Spontaneous
  Country: GB (occurrence: GB)
  Receive Date: 20150123
  Receipt Date: 20150123
  Transmission Date: 20150721
  Serious: Yes (Other)
  Sender: FDA-Public Use
  Company Number: GB-AUROBINDO-AUR-APL-2015-00255

PATIENT
  Age: 41 Year
  Sex: Female
  Weight: 101.6 kg

DRUGS (1)
  1. MIRTAZAPINE 45MG [Suspect]
     Active Substance: MIRTAZAPINE
     Indication: DEPRESSION
     Dosage: 45 MG, ONCE A DAY
     Route: 048
     Dates: start: 20140210

REACTIONS (3)
  - General physical health deterioration [Unknown]
  - Abnormal weight gain [Not Recovered/Not Resolved]
  - Arthropathy [Unknown]

NARRATIVE: CASE EVENT DATE: 20140210
